FAERS Safety Report 23083839 (Version 1)
Quarter: 2023Q4

REPORT INFORMATION
  Report Type: Report from Study
  Country: US (occurrence: US)
  Receive Date: 20231019
  Receipt Date: 20231019
  Transmission Date: 20240110
  Serious: Yes (Hospitalization)
  Sender: FDA-Public Use
  Company Number: US-ABBVIE-5456117

PATIENT
  Sex: Male

DRUGS (1)
  1. HUMIRA [Suspect]
     Active Substance: ADALIMUMAB
     Indication: Rheumatoid arthritis
     Dosage: CITRATE FREE?STRENGTH:40MG
     Route: 058
     Dates: start: 20220618, end: 20230701

REACTIONS (3)
  - Aphasia [Recovering/Resolving]
  - Pain [Unknown]
  - Immune system disorder [Unknown]
